FAERS Safety Report 14668086 (Version 2)
Quarter: 2020Q3

REPORT INFORMATION
  Report Type: Spontaneous
  Country: FR (occurrence: FR)
  Receive Date: 20180322
  Receipt Date: 20180406
  Transmission Date: 20201105
  Serious: Yes (Death)
  Sender: FDA-Public Use
  Company Number: FR-009507513-1803FRA008802

PATIENT
  Age: 54 Year
  Sex: Male
  Weight: 54 kg

DRUGS (23)
  1. CANCIDAS [Suspect]
     Active Substance: CASPOFUNGIN ACETATE
     Indication: INFECTION
     Dosage: UNK
     Route: 042
     Dates: start: 20180202, end: 20180206
  2. CIFLOX (CIPROFLOXACIN HYDROCHLORIDE) [Suspect]
     Active Substance: CIPROFLOXACIN HYDROCHLORIDE
     Indication: INFECTION
     Dosage: 1 DF, Q12H; STRENGTH: 200MG/100ML
     Route: 042
     Dates: start: 20180211, end: 20180226
  3. SUFENTANIL [Concomitant]
     Active Substance: SUFENTANIL
     Dosage: UNK
     Route: 042
     Dates: start: 20180120
  4. FORTUM [Suspect]
     Active Substance: CEFTAZIDIME
     Indication: INFECTION
     Dosage: 1 DF, Q8H
     Route: 042
     Dates: start: 20180131, end: 20180202
  5. ROCEPHIN [Concomitant]
     Active Substance: CEFTRIAXONE SODIUM
     Dosage: 1 G, Q12H
     Route: 042
     Dates: start: 20180120, end: 20180129
  6. ATROVENT [Concomitant]
     Active Substance: IPRATROPIUM BROMIDE
     Dosage: UNK
     Route: 055
     Dates: start: 20180128
  7. EUPRESSYL [Concomitant]
     Active Substance: URAPIDIL
     Dosage: UNK
     Route: 042
     Dates: start: 20180202
  8. FLAGYL [Suspect]
     Active Substance: METRONIDAZOLE\METRONIDAZOLE HYDROCHLORIDE
     Indication: INFECTION
     Dosage: 500 MG, Q8H
     Route: 042
     Dates: start: 20180120, end: 20180126
  9. TIENAM 500MG/500MG, POUDRE POUR PERFUSION [Suspect]
     Active Substance: CILASTATIN SODIUM\IMIPENEM
     Indication: INFECTION
     Dosage: UNK
     Route: 042
     Dates: start: 20180201, end: 20180211
  10. AMIKACIN. [Suspect]
     Active Substance: AMIKACIN
     Indication: INFECTION
     Dosage: UNK
     Route: 042
     Dates: start: 20180211, end: 20180217
  11. AXEPIM [Suspect]
     Active Substance: CEFEPIME HYDROCHLORIDE
     Indication: INFECTION
     Dosage: 2 G, Q24H
     Route: 042
     Dates: start: 20180129, end: 20180201
  12. VANCOMYCIN [Suspect]
     Active Substance: VANCOMYCIN
     Dosage: UNK
     Route: 042
     Dates: start: 20180130, end: 20180202
  13. TRIFLUCAN [Suspect]
     Active Substance: FLUCONAZOLE
     Indication: INFECTION
     Dosage: 800 MG, Q24H; STRENGTH: 2 MG/ML
     Route: 042
     Dates: start: 20180207, end: 20180213
  14. CATAPRESSAN [Concomitant]
     Active Substance: CLONIDINE
     Dosage: UNK
     Route: 042
     Dates: start: 20180206, end: 20180212
  15. PERFALGAN [Concomitant]
     Active Substance: ACETAMINOPHEN
     Dosage: UNK
     Route: 042
     Dates: start: 20180123
  16. LASILIX [Concomitant]
     Active Substance: FUROSEMIDE
     Dosage: UNK
     Route: 042
     Dates: start: 20180130
  17. INSULIN [Concomitant]
     Active Substance: INSULIN NOS
     Dosage: UNK
     Dates: start: 20180120
  18. CARDENSIEL [Concomitant]
     Active Substance: BISOPROLOL FUMARATE
     Dosage: UNK
     Route: 048
     Dates: start: 20180206, end: 20180226
  19. INEXIUM (ESOMEPRAZOLE MAGNESIUM) [Concomitant]
     Active Substance: ESOMEPRAZOLE MAGNESIUM
     Dosage: UNK
     Route: 042
  20. ATARAX [Concomitant]
     Active Substance: HYDROXYZINE HYDROCHLORIDE
     Dosage: UNK
     Route: 048
     Dates: start: 20180212, end: 20180214
  21. COLIMYCINE (COLISTIMETHATE SODIUM) [Suspect]
     Active Substance: COLISTIMETHATE SODIUM
     Indication: INFECTION
     Dosage: UNK
     Dates: start: 20180211, end: 20180226
  22. LOVENOX [Concomitant]
     Active Substance: ENOXAPARIN SODIUM
     Dosage: 1 DF, QD
     Route: 058
  23. RAMIPRIL. [Concomitant]
     Active Substance: RAMIPRIL
     Dosage: UNK
     Route: 048
     Dates: start: 20180206, end: 20180226

REACTIONS (1)
  - Toxic epidermal necrolysis [Fatal]

NARRATIVE: CASE EVENT DATE: 20180212
